FAERS Safety Report 24250809 (Version 1)
Quarter: 2024Q3

REPORT INFORMATION
  Report Type: Spontaneous
  Country: US (occurrence: US)
  Receive Date: 20240826
  Receipt Date: 20240826
  Transmission Date: 20241017
  Serious: No
  Sender: MEDEXUS PHARMA
  Company Number: US-MEDEXUS PHARMA, INC.-2024MED00208

PATIENT
  Age: 63 Year
  Sex: Female

DRUGS (9)
  1. RASUVO [Suspect]
     Active Substance: METHOTREXATE SODIUM
     Indication: Osteoarthritis
     Dosage: UNK
     Dates: start: 202311, end: 202403
  2. RASUVO [Suspect]
     Active Substance: METHOTREXATE SODIUM
     Indication: Chondrocalcinosis
  3. RASUVO [Suspect]
     Active Substance: METHOTREXATE SODIUM
     Indication: Osteoarthritis
     Dosage: INCREASED TO 22.5 MG, 1X/WEEK, MONDAYS
     Dates: start: 202403
  4. RASUVO [Suspect]
     Active Substance: METHOTREXATE SODIUM
     Indication: Chondrocalcinosis
  5. OMEPRAZOLE [Concomitant]
     Active Substance: OMEPRAZOLE
     Dosage: 40 MG, 1X/DAY
  6. FOLIC ACID [Concomitant]
     Active Substance: FOLIC ACID
  7. VITAMIN D NOS [Concomitant]
     Active Substance: CHOLECALCIFEROL\ERGOCALCIFEROL
  8. HERBALS\TURMERIC [Concomitant]
     Active Substance: HERBALS\TURMERIC
  9. PREDNISONE [Concomitant]
     Active Substance: PREDNISONE

REACTIONS (5)
  - Mood swings [Not Recovered/Not Resolved]
  - Crying [Not Recovered/Not Resolved]
  - Gastrooesophageal reflux disease [Not Recovered/Not Resolved]
  - Nausea [Not Recovered/Not Resolved]
  - Off label use [Not Recovered/Not Resolved]

NARRATIVE: CASE EVENT DATE: 20231101
